FAERS Safety Report 10866030 (Version 16)
Quarter: 2023Q1

REPORT INFORMATION
  Report Type: Report from Study
  Country: US (occurrence: US)
  Receive Date: 20150225
  Receipt Date: 20230131
  Transmission Date: 20230417
  Serious: Yes (Hospitalization, Other)
  Sender: FDA-Public Use
  Company Number: PHEH2014US016539

PATIENT
  Age: 28 Year
  Sex: Female
  Weight: 68.027 kg

DRUGS (13)
  1. GILENYA [Suspect]
     Active Substance: FINGOLIMOD HYDROCHLORIDE
     Indication: Multiple sclerosis
     Dosage: 0.5 MG, QD (PERI-LMP AND 1ST TRIMESTER)
     Route: 048
     Dates: start: 20120101, end: 20140812
  2. GILENYA [Suspect]
     Active Substance: FINGOLIMOD HYDROCHLORIDE
     Dosage: 0.5 MG, QD
     Route: 048
     Dates: start: 20150417
  3. GABAPENTIN [Concomitant]
     Active Substance: GABAPENTIN
     Indication: Multiple sclerosis
     Dosage: 300 MG, QD
     Route: 048
     Dates: end: 20140812
  4. TRANSDERM SCOP [Concomitant]
     Active Substance: SCOPOLAMINE
     Indication: Morning sickness
     Dosage: 1.5 MG, EVERY 3 DAYS
     Route: 062
     Dates: start: 20141016
  5. MAGNESIUM [Concomitant]
     Active Substance: MAGNESIUM
     Indication: Product used for unknown indication
     Dosage: 400 MG, QD
     Route: 048
  6. VITAMIN D [Concomitant]
     Active Substance: VITAMIN D NOS
     Indication: Nutritional supplementation
     Dosage: UNK, QD (PERI-LMP)
     Route: 048
     Dates: start: 201204
  7. VITAMIN C [Concomitant]
     Active Substance: ASCORBIC ACID
     Indication: Immune system disorder
     Dosage: UNK, QD
     Route: 048
     Dates: start: 201504
  8. PROPRANOLOL [Concomitant]
     Active Substance: PROPRANOLOL HYDROCHLORIDE
     Indication: Heart rate increased
     Dosage: 10 MG, TID
     Route: 048
     Dates: start: 20141016, end: 20141023
  9. VITAMINS [Concomitant]
     Active Substance: VITAMINS
     Indication: Nutritional supplementation
     Dosage: UNK
     Route: 048
  10. VITAMINS [Concomitant]
     Active Substance: VITAMINS
     Indication: Vitamin supplementation
  11. NEXIUM [Concomitant]
     Active Substance: ESOMEPRAZOLE MAGNESIUM
     Indication: Product used for unknown indication
     Dosage: 20 MG, QD
     Route: 048
  12. CALCIUM [Concomitant]
     Active Substance: CALCIUM
     Indication: Nutritional supplementation
     Dosage: UNK UNK, QD
     Route: 048
     Dates: start: 201504
  13. IRON [Concomitant]
     Active Substance: IRON
     Indication: Anaemia
     Dosage: UNK UNK, QD
     Route: 048
     Dates: start: 20150404

REACTIONS (11)
  - Hyperthyroidism [Recovered/Resolved]
  - Dehydration [Recovered/Resolved]
  - Illness [Recovered/Resolved]
  - Deep vein thrombosis [Not Recovered/Not Resolved]
  - Haemorrhage [Recovered/Resolved]
  - Urine potassium abnormal [Recovered/Resolved]
  - Premature delivery [Unknown]
  - Ovarian disorder [Unknown]
  - White blood cell count decreased [Unknown]
  - Maternal exposure during pregnancy [Unknown]
  - Smear cervix abnormal [Not Recovered/Not Resolved]

NARRATIVE: CASE EVENT DATE: 20140701
